FAERS Safety Report 13247615 (Version 1)
Quarter: 2017Q1

REPORT INFORMATION
  Report Type: Spontaneous
  Country: IL (occurrence: IL)
  Receive Date: 20170217
  Receipt Date: 20170217
  Transmission Date: 20170428
  Serious: Yes (Other)
  Sender: FDA-Public Use
  Company Number: IL-INCYTE CORPORATION-2017IN001125

PATIENT
  Age: 60 Year
  Sex: Male

DRUGS (1)
  1. JAKAVI [Suspect]
     Active Substance: RUXOLITINIB
     Indication: POLYCYTHAEMIA VERA
     Dosage: UNK UNK, BID
     Route: 065

REACTIONS (13)
  - Liver function test abnormal [Unknown]
  - Visual acuity reduced [Unknown]
  - Speech disorder [Unknown]
  - Hallucination [Unknown]
  - Muscular weakness [Unknown]
  - Blood cholesterol increased [Unknown]
  - Dizziness [Unknown]
  - Bradykinesia [Unknown]
  - Parosmia [Unknown]
  - Paraesthesia [Recovered/Resolved]
  - Feeling abnormal [Unknown]
  - Seizure [Unknown]
  - Motor dysfunction [Unknown]

NARRATIVE: CASE EVENT DATE: 20170124
